FAERS Safety Report 23344027 (Version 3)
Quarter: 2024Q1

REPORT INFORMATION
  Report Type: Report from Study
  Country: US (occurrence: US)
  Receive Date: 20231227
  Receipt Date: 20240301
  Transmission Date: 20240410
  Serious: Yes (Other)
  Sender: FDA-Public Use
  Company Number: US-ABBVIE-5558871

PATIENT
  Age: 72 Year
  Sex: Male
  Weight: 71 kg

DRUGS (13)
  1. CREON [Suspect]
     Active Substance: PANCRELIPASE AMYLASE\PANCRELIPASE LIPASE\PANCRELIPASE PROTEASE
     Indication: Product used for unknown indication
     Dosage: TIME INTERVAL: 0.33333333 DAYS
     Route: 048
  2. MOXIFLOXACIN [Concomitant]
     Active Substance: MOXIFLOXACIN
     Indication: Product used for unknown indication
     Dosage: MOXIFLOXACIN 0.5 % OPHTHALMIC SOLUTION (VIGAMOX)?FORM STRENGTH: 0.5 PERCENT
     Route: 047
  3. PREDNISOLONE ACETATE [Concomitant]
     Active Substance: PREDNISOLONE ACETATE
     Indication: Product used for unknown indication
     Dosage: PREDNISOLONE ACETATE 1 % OPHTHALMIC SUSPENSION  (PRED FORTE)?FORM STRENGTH: 1 PERCENT
  4. LISINOPRIL [Concomitant]
     Active Substance: LISINOPRIL
     Indication: Product used for unknown indication
     Dosage: LISINOPRIL 5 MG TABLET (ZESTRIL)?FORM STRENGTH: 5 MILLIGRAM
     Route: 048
  5. ESCITALOPRAM [Concomitant]
     Active Substance: ESCITALOPRAM OXALATE
     Indication: Product used for unknown indication
     Dosage: ESCITALOPRAM 20 MG TABLET (LEXAPRO)?FORM STRENGTH: 20 MILLIGRAM
     Route: 048
  6. TAMSULOSIN [Concomitant]
     Active Substance: TAMSULOSIN
     Indication: Product used for unknown indication
     Dosage: TAMSULOSIN 0.4 MG (FLOMAX)?FORM STRENGTH: 0.4 MILLIGRAM?FREQUENCY TEXT: DAILY WITH DINNER
     Route: 048
  7. OXYBUTYNIN [Concomitant]
     Active Substance: OXYBUTYNIN\OXYBUTYNIN CHLORIDE
     Indication: Bladder spasm
     Dosage: TIME INTERVAL: 0.33333333 DAYS: OXYBUTYNIN 5 MG TABLET (DITROPAN)?FORM STRENGTH: 5 MILLIGRAM
     Route: 048
  8. SILDENAFIL [Concomitant]
     Active Substance: SILDENAFIL
     Indication: Erectile dysfunction
     Dosage: FORM STRENGTH: 10MILLIGRAM
     Route: 048
  9. SILDENAFIL [Concomitant]
     Active Substance: SILDENAFIL
     Indication: Erectile dysfunction
     Dosage: SILDENAFIL 100 MG TABLET (VIAGRA CHANGE)?FORM STRENGTH: 100 MILLIGRAM
     Route: 048
  10. KETOROLAC [Concomitant]
     Active Substance: KETOROLAC TROMETHAMINE
     Indication: Product used for unknown indication
     Dosage: KETOROLAC 0.5 % OPHTHALMIC SOLUTION (ACULAR)?FORM STRENGTH: 0.5 PERCENT
     Route: 047
  11. ASPIRIN [Concomitant]
     Active Substance: ASPIRIN
     Indication: Product used for unknown indication
     Dosage: ASPIRIN 81 MG EC TABLET?FORM STRENGTH: 81 MILLIGRAM
     Route: 048
  12. COMBIGAN [Concomitant]
     Active Substance: BRIMONIDINE TARTRATE\TIMOLOL MALEATE
     Indication: Product used for unknown indication
     Dosage: COMBIGAN 0.2-0.5 % (BRIMONIDINE-TIMOLOL)
  13. LUMIGAN [Concomitant]
     Active Substance: BIMATOPROST
     Indication: Product used for unknown indication
     Dosage: LUMIGAN 0.01 % OPHTHALMIC DROPS (BIMATOPROST)?FORM STRENGTH: 0.01 PERCENT
     Route: 047

REACTIONS (4)
  - Bladder operation [Recovered/Resolved]
  - Bladder operation [Unknown]
  - Bladder perforation [Unknown]
  - Unevaluable event [Unknown]

NARRATIVE: CASE EVENT DATE: 20231201
